FAERS Safety Report 14315063 (Version 3)
Quarter: 2018Q2

REPORT INFORMATION
  Report Type: Spontaneous
  Country: NL (occurrence: NL)
  Receive Date: 20171221
  Receipt Date: 20180426
  Transmission Date: 20180711
  Serious: Yes (Other)
  Sender: FDA-Public Use
  Company Number: NL-TEVA-2017-NL-837696

PATIENT
  Age: 70 Year
  Sex: Male

DRUGS (4)
  1. OXYCODONE [Suspect]
     Active Substance: OXYCODONE
     Indication: CANCER PAIN
     Route: 065
  2. ENZALUTAMIDE [Interacting]
     Active Substance: ENZALUTAMIDE
     Indication: HORMONE-REFRACTORY PROSTATE CANCER
     Route: 065
  3. OXYCODONE [Interacting]
     Active Substance: OXYCODONE
     Dosage: 40 MILLIGRAM DAILY;
     Route: 065
  4. OXYCODONE W/PARACETAMOL [Interacting]
     Active Substance: ACETAMINOPHEN\OXYCODONE HYDROCHLORIDE
     Indication: CANCER PAIN
     Route: 065

REACTIONS (3)
  - Potentiating drug interaction [Unknown]
  - Malignant neoplasm progression [Unknown]
  - Drug ineffective [Unknown]
